FAERS Safety Report 14974626 (Version 1)
Quarter: 2018Q2

REPORT INFORMATION
  Report Type: Report from Study
  Country: PL (occurrence: PL)
  Receive Date: 20180605
  Receipt Date: 20180605
  Transmission Date: 20180711
  Serious: Yes (Other)
  Sender: FDA-Public Use
  Company Number: PL-GILEAD-2018-0341899

PATIENT

DRUGS (2)
  1. IDELALISIB [Suspect]
     Active Substance: IDELALISIB
     Indication: CHRONIC LYMPHOCYTIC LEUKAEMIA RECURRENT
     Dosage: 150 MG, UNK
     Route: 048
  2. MOR208 [Suspect]
     Active Substance: INVESTIGATIONAL PRODUCT
     Indication: CHRONIC LYMPHOCYTIC LEUKAEMIA RECURRENT
     Dosage: 12 MG/KG, CYCLICAL
     Route: 042

REACTIONS (1)
  - Pancreatitis acute [Unknown]
